FAERS Safety Report 21130614 (Version 3)
Quarter: 2022Q4

REPORT INFORMATION
  Report Type: Spontaneous
  Country: NZ (occurrence: NZ)
  Receive Date: 20220726
  Receipt Date: 20221012
  Transmission Date: 20230112
  Serious: Yes (Other)
  Sender: FDA-Public Use
  Company Number: NZ-SA-SAC20220722001718

PATIENT
  Age: 71 Year
  Sex: Male

DRUGS (2)
  1. LANTUS [Suspect]
     Active Substance: INSULIN GLARGINE
     Dosage: 5 IU, BID
     Route: 065
  2. NOVORAPID [Concomitant]
     Active Substance: INSULIN ASPART

REACTIONS (7)
  - Loss of consciousness [Unknown]
  - Neuropathy peripheral [Unknown]
  - Periodontal disease [Unknown]
  - Hypoglycaemia [Recovered/Resolved]
  - Product prescribing issue [Unknown]
  - Inappropriate schedule of product administration [Unknown]
  - Incorrect dose administered [Unknown]

NARRATIVE: CASE EVENT DATE: 20220718
